FAERS Safety Report 4290056-1 (Version None)
Quarter: 2004Q1

REPORT INFORMATION
  Report Type: 
  Country: None (occurrence: None)
  Receive Date: 20040206
  Receipt Date: 20040206
  Transmission Date: 20041129
  Serious: Yes (Death)
  Sender: FDA-Public Use
  Company Number: None

PATIENT
  Age: 21 Year
  Sex: Male
  Weight: 79.3795 kg

DRUGS (2)
  1. WELLBUTRIN SR [Suspect]
     Indication: DISTURBANCE IN ATTENTION
     Dosage: 100 MG SR DAY ORAL
     Route: 048
     Dates: start: 20020816, end: 20020819
  2. REMERON [Concomitant]

REACTIONS (8)
  - ABNORMAL BEHAVIOUR [None]
  - COMPLETED SUICIDE [None]
  - CONFUSIONAL STATE [None]
  - DEPRESSION [None]
  - IMPAIRED DRIVING ABILITY [None]
  - IRRITABILITY [None]
  - MEDICATION ERROR [None]
  - SOCIAL AVOIDANT BEHAVIOUR [None]
